APPROVED DRUG PRODUCT: BETAPACE AF
Active Ingredient: SOTALOL HYDROCHLORIDE
Strength: 40MG
Dosage Form/Route: TABLET;ORAL
Application: N021151 | Product #006
Applicant: LEGACY PHARMA INC
Approved: Apr 2, 2003 | RLD: No | RS: No | Type: DISCN